FAERS Safety Report 14765536 (Version 1)
Quarter: 2018Q2

REPORT INFORMATION
  Report Type: Spontaneous
  Country: US (occurrence: US)
  Receive Date: 20180410
  Receipt Date: 20180410
  Transmission Date: 20180711
  Serious: No
  Sender: FDA-Public Use
  Company Number: None

PATIENT
  Age: 69 Year
  Sex: Female
  Weight: 91.17 kg

DRUGS (26)
  1. LAMICTAL [Concomitant]
     Active Substance: LAMOTRIGINE
  2. MAGNESIUM [Concomitant]
     Active Substance: MAGNESIUM
  3. TRAZODONE [Concomitant]
     Active Substance: TRAZODONE HYDROCHLORIDE
  4. ZYRTEC [Concomitant]
     Active Substance: CETIRIZINE HYDROCHLORIDE
  5. ALPRAZOLAM. [Concomitant]
     Active Substance: ALPRAZOLAM
  6. VITAMIN B12 [Concomitant]
     Active Substance: CYANOCOBALAMIN
  7. CELEBREX [Concomitant]
     Active Substance: CELECOXIB
  8. ESTRADIOL. [Concomitant]
     Active Substance: ESTRADIOL
  9. PROPOFOL. [Suspect]
     Active Substance: PROPOFOL
  10. XYLOCAINE [Suspect]
     Active Substance: LIDOCAINE HYDROCHLORIDE
     Indication: ANAESTHESIA
     Route: 042
     Dates: start: 20170906
  11. CALCIUM [Concomitant]
     Active Substance: CALCIUM
  12. HIZENTRA [Concomitant]
     Active Substance: HUMAN IMMUNOGLOBULIN G
  13. PREDNISONE. [Concomitant]
     Active Substance: PREDNISONE
  14. PRILOSEC [Concomitant]
     Active Substance: OMEPRAZOLE MAGNESIUM
  15. XYLOCAINE [Suspect]
     Active Substance: LIDOCAINE HYDROCHLORIDE
     Indication: COLONOSCOPY
     Route: 042
     Dates: start: 20170906
  16. AFRIN [Concomitant]
     Active Substance: OXYMETAZOLINE
  17. FLUTICASONE. [Concomitant]
     Active Substance: FLUTICASONE
  18. CYMBALTA [Concomitant]
     Active Substance: DULOXETINE HYDROCHLORIDE
  19. VITAMIN D3 [Concomitant]
     Active Substance: CHOLECALCIFEROL
  20. LISINOPRIL. [Concomitant]
     Active Substance: LISINOPRIL
  21. ACYCLOVIR. [Concomitant]
     Active Substance: ACYCLOVIR
  22. VALACYCLOVIR [Concomitant]
     Active Substance: VALACYCLOVIR HYDROCHLORIDE
  23. PROPOFOL. [Suspect]
     Active Substance: PROPOFOL
     Indication: ANAESTHESIA
     Route: 042
     Dates: start: 20170906
  24. PROPOFOL. [Suspect]
     Active Substance: PROPOFOL
     Indication: COLONOSCOPY
     Route: 042
     Dates: start: 20170906
  25. EXCEDRINE [Concomitant]
  26. PROAIR HFA [Concomitant]
     Active Substance: ALBUTEROL SULFATE

REACTIONS (4)
  - Peripheral swelling [None]
  - Headache [None]
  - Swelling face [None]
  - Drug hypersensitivity [None]

NARRATIVE: CASE EVENT DATE: 20170906
